FAERS Safety Report 4845351-1 (Version None)
Quarter: 2005Q4

REPORT INFORMATION
  Report Type: 
  Country: None (occurrence: None)
  Receive Date: 20051205
  Receipt Date: 20051201
  Transmission Date: 20060501
  Serious: Yes (Hospitalization)
  Sender: FDA-Public Use
  Company Number: FRAGNR03024

PATIENT
  Age: 13 Month
  Sex: Male

DRUGS (2)
  1. AMOXICILLIN AND CLAVULANATE POTASSIUM [Suspect]
     Indication: SUPERINFECTION LUNG
     Route: 048
     Dates: start: 20030310, end: 20030315
  2. R.O.R. VAX [Suspect]
     Indication: PROPHYLAXIS
     Dosage: 1INJ PER DAY
     Route: 030
     Dates: start: 20030307

REACTIONS (1)
  - ANGIONEUROTIC OEDEMA [None]
